FAERS Safety Report 9008254 (Version 2)
Quarter: 2013Q1

REPORT INFORMATION
  Report Type: Report from Study
  Country: FR (occurrence: FR)
  Receive Date: 20130111
  Receipt Date: 20130213
  Transmission Date: 20140127
  Serious: Yes (Other)
  Sender: FDA-Public Use
  Company Number: FR-GENZYME-CAMP-1002667

PATIENT
  Sex: Male

DRUGS (2)
  1. CAMPATH [Suspect]
     Indication: T-CELL LYMPHOMA
     Dosage: 30 MG, 3X/W
     Route: 065
     Dates: start: 20120831, end: 20120901
  2. CAMPATH [Suspect]
     Indication: MYCOSIS FUNGOIDES

REACTIONS (1)
  - Disease progression [Unknown]
